FAERS Safety Report 6888653-X (Version None)
Quarter: 2010Q3

REPORT INFORMATION
  Report Type: 
  Country: None (occurrence: None)
  Receive Date: 20100730
  Receipt Date: 20071010
  Transmission Date: 20110219
  Serious: No
  Sender: FDA-Public Use
  Company Number: US-PFIZER INC-2007085919

PATIENT

DRUGS (1)
  1. ATORVASTATIN [Suspect]

REACTIONS (1)
  - MYALGIA [None]
